FAERS Safety Report 7383604-6 (Version None)
Quarter: 2011Q1

REPORT INFORMATION
  Report Type: 
  Country: None (occurrence: None)
  Receive Date: 20110325
  Receipt Date: 20110325
  Transmission Date: 20110831
  Serious: Yes (Congenital Anomaly, Other)
  Sender: FDA-Public Use
  Company Number: None

PATIENT
  Age: 40 Year
  Sex: Female
  Weight: 63.05 kg

DRUGS (4)
  1. OXYCONTIN [Suspect]
     Indication: NERVOUS SYSTEM DISORDER
     Dosage: 4 A DAY 30 DAYS (REST OF MY LIFE)
     Dates: start: 20040322, end: 20110324
  2. OXYCONTIN [Suspect]
     Indication: INTERVERTEBRAL DISC DISORDER
     Dosage: 4 A DAY 30 DAYS (REST OF MY LIFE)
     Dates: start: 20040322, end: 20110324
  3. OXYCONTIN [Suspect]
     Indication: SPINAL DISORDER
     Dosage: 4 A DAY 30 DAYS (REST OF MY LIFE)
     Dates: start: 20040322, end: 20110324
  4. OXYCONTIN [Suspect]
     Indication: ARTHROPATHY
     Dosage: 4 A DAY 30 DAYS (REST OF MY LIFE)
     Dates: start: 20040322, end: 20110324

REACTIONS (6)
  - PRODUCT QUALITY ISSUE [None]
  - SKIN DISCOLOURATION [None]
  - CHOKING [None]
  - DYSPNOEA [None]
  - FOREIGN BODY [None]
  - DRUG INEFFECTIVE [None]
